FAERS Safety Report 10147279 (Version 2)
Quarter: 2014Q4

REPORT INFORMATION
  Report Type: Spontaneous
  Country: JP (occurrence: JP)
  Receive Date: 20140501
  Receipt Date: 20141218
  Transmission Date: 20150528
  Serious: Yes (Hospitalization)
  Sender: FDA-Public Use
  Company Number: JP-009507513-1405JPN000290

PATIENT
  Age: 69 Year
  Sex: Male

DRUGS (3)
  1. REBETOL [Suspect]
     Active Substance: RIBAVIRIN
     Dosage: 800 MG, QD, DIVIDED DOSE FREQUENCY UNKNOWN
     Route: 048
     Dates: start: 20140107, end: 20140416
  2. PEGINTRON [Suspect]
     Active Substance: PEGINTERFERON ALFA-2B
     Dosage: 100 MICROGRAM PER KILOGRAM, QW
     Route: 058
     Dates: start: 20140107, end: 20140416
  3. SOVRIAD [Suspect]
     Active Substance: SIMEPREVIR
     Dosage: 100 MG, QD
     Route: 065
     Dates: start: 20140107, end: 2014

REACTIONS (1)
  - Interstitial lung disease [Recovered/Resolved]

NARRATIVE: CASE EVENT DATE: 20140423
